FAERS Safety Report 6394186-X (Version None)
Quarter: 2009Q4

REPORT INFORMATION
  Report Type: 
  Country: None (occurrence: None)
  Receive Date: 20091008
  Receipt Date: 20090926
  Transmission Date: 20100525
  Serious: Yes (Disabling, Other)
  Sender: FDA-Public Use
  Company Number: PHHY2009US41390

PATIENT
  Age: 54 Year
  Sex: Female

DRUGS (3)
  1. ENTACAPONE [Suspect]
  2. LEVODOPA [Suspect]
     Dosage: 500 MG/ DAY
  3. PRAMIPEXOLE [Suspect]
     Indication: PARKINSONISM

REACTIONS (2)
  - DYSKINESIA [None]
  - ON AND OFF PHENOMENON [None]
